FAERS Safety Report 4673999-6 (Version None)
Quarter: 2005Q2

REPORT INFORMATION
  Report Type: 
  Country: None (occurrence: None)
  Receive Date: 20050525
  Receipt Date: 20050511
  Transmission Date: 20051028
  Serious: Yes (Death, Other)
  Sender: FDA-Public Use
  Company Number: GB-2005-005475

PATIENT
  Age: 62 Year
  Sex: Male
  Weight: 75 kg

DRUGS (4)
  1. CAMPATH [Suspect]
     Indication: MYCOSIS FUNGOIDES
     Dosage: 30 MG, INTRAVENOUS
     Route: 042
     Dates: start: 20050203, end: 20050329
  2. COTRIM [Concomitant]
  3. FLUCONAZOLE [Concomitant]
  4. ACYCLOVIR [Concomitant]

REACTIONS (7)
  - ASTHENIA [None]
  - BEDRIDDEN [None]
  - NERVE DEGENERATION [None]
  - NEURITIS [None]
  - NEUROPATHY [None]
  - PARALYSIS [None]
  - PARANEOPLASTIC SYNDROME [None]
